FAERS Safety Report 9371085 (Version 1)
Quarter: 2013Q2

REPORT INFORMATION
  Report Type: Spontaneous
  Country: US (occurrence: None)
  Receive Date: 20130626
  Receipt Date: 20130626
  Transmission Date: 20140414
  Serious: Yes (Death)
  Sender: FDA-Public Use
  Company Number: None

PATIENT
  Age: 59 Year
  Sex: Male
  Weight: 83.46 kg

DRUGS (1)
  1. JANUMET 50/1000 MERCK [Suspect]
     Indication: TYPE 2 DIABETES MELLITUS
     Dosage: 50/1000 BID PO
     Route: 048
     Dates: start: 20080407, end: 20100802

REACTIONS (1)
  - Adenocarcinoma pancreas [None]
